FAERS Safety Report 11173534 (Version 1)
Quarter: 2015Q2

REPORT INFORMATION
  Report Type: Report from Study
  Country: US (occurrence: US)
  Receive Date: 20150609
  Receipt Date: 20150609
  Transmission Date: 20150821
  Serious: Yes (Other)
  Sender: FDA-Public Use
  Company Number: US-ROCHE-1586526

PATIENT
  Sex: Female

DRUGS (6)
  1. PACLITAXEL. [Suspect]
     Active Substance: PACLITAXEL
     Indication: OVARIAN EPITHELIAL CANCER
     Dosage: OVER 3 H ON DAY 1
     Route: 042
  2. CISPLATIN. [Suspect]
     Active Substance: CISPLATIN
     Indication: OVARIAN EPITHELIAL CANCER
     Dosage: ON DAY 2
     Route: 033
  3. BEVACIZUMAB [Suspect]
     Active Substance: BEVACIZUMAB
     Indication: OVARIAN EPITHELIAL CANCER
     Dosage: ON DAY 1 BEGINNING ON CYCLE 2, EVERY 21 DAYS FOR 6 CYCLES, FOLLOWED BY IV BEVACIZUMAB 15 MG/KG FOR C
     Route: 042
  4. PACLITAXEL. [Suspect]
     Active Substance: PACLITAXEL
     Dosage: ON DAY 8?(EVERY 21 DAYS FOR 6 CYCLES)
     Route: 033
  5. PACLITAXEL. [Suspect]
     Active Substance: PACLITAXEL
     Dosage: OVER 1 H ON DAYS 1, 8, AND 15
     Route: 042
  6. CARBOPLATIN. [Suspect]
     Active Substance: CARBOPLATIN
     Indication: OVARIAN EPITHELIAL CANCER
     Dosage: AUC OF 6 ON DAY 1
     Route: 033

REACTIONS (15)
  - Pelvic haematoma [Unknown]
  - Vaginal discharge [Unknown]
  - Abdominal pain [Unknown]
  - Myocardial infarction [Unknown]
  - Pleural effusion [Unknown]
  - Neuropathy peripheral [Unknown]
  - Anastomotic leak [Unknown]
  - Urogenital fistula [Unknown]
  - Wound infection [Unknown]
  - Intestinal obstruction [Unknown]
  - Performance status decreased [Unknown]
  - Dehydration [Unknown]
  - Drug hypersensitivity [Unknown]
  - Ascites [Unknown]
  - Gastrointestinal disorder [Unknown]
